FAERS Safety Report 17826037 (Version 2)
Quarter: 2020Q2

REPORT INFORMATION
  Report Type: Spontaneous
  Country: GR (occurrence: GR)
  Receive Date: 20200526
  Receipt Date: 20200602
  Transmission Date: 20200714
  Serious: Yes (Other)
  Sender: FDA-Public Use
  Company Number: GR-PFIZER INC-2020202631

PATIENT
  Sex: Male

DRUGS (1)
  1. EFEXOR XR [Suspect]
     Active Substance: VENLAFAXINE HYDROCHLORIDE
     Dosage: 150 MG, 1X/DAY (IN THE EVENING)

REACTIONS (3)
  - Cerebral thrombosis [Unknown]
  - Parkinson^s disease [Unknown]
  - Sleep disorder [Unknown]
